FAERS Safety Report 6164816-6 (Version None)
Quarter: 2009Q2

REPORT INFORMATION
  Report Type: 
  Country: None (occurrence: None)
  Receive Date: 20090423
  Receipt Date: 20090415
  Transmission Date: 20091009
  Serious: Yes (Other)
  Sender: FDA-Public Use
  Company Number: PHEH2009US03601

PATIENT
  Sex: Male
  Weight: 28 kg

DRUGS (1)
  1. TRILEPTAL [Suspect]
     Indication: CONVULSION
     Dosage: 300 MG, BID
     Route: 048
     Dates: start: 20090306

REACTIONS (9)
  - CONVULSION [None]
  - DROOLING [None]
  - DYSARTHRIA [None]
  - FACIAL PALSY [None]
  - INCREASED UPPER AIRWAY SECRETION [None]
  - INITIAL INSOMNIA [None]
  - MUSCLE TWITCHING [None]
  - SPEECH DISORDER [None]
  - THINKING ABNORMAL [None]
